FAERS Safety Report 9550645 (Version 1)
Quarter: 2013Q3

REPORT INFORMATION
  Report Type: Spontaneous
  Country: US (occurrence: US)
  Receive Date: 20130924
  Receipt Date: 20130924
  Transmission Date: 20140515
  Serious: No
  Sender: FDA-Public Use
  Company Number: US-SANOFI-AVENTIS-2013SA011141

PATIENT
  Age: 60 Year
  Sex: Female
  Weight: 54.43 kg

DRUGS (8)
  1. AUBAGIO [Suspect]
     Indication: MULTIPLE SCLEROSIS
     Route: 048
     Dates: start: 20121212, end: 20130304
  2. TIZANIDINE HYDROCHLORIDE [Suspect]
     Indication: ALOPECIA
  3. MELOXICAM [Suspect]
     Indication: ARTHRITIS
  4. FISH OIL [Concomitant]
  5. VITAMIN E [Concomitant]
     Dosage: 2 TABLETS OF 400 MG A DAY
     Route: 048
  6. ERGOCALCIFEROL [Concomitant]
     Dosage: 1 PER DAY
  7. ZYRTEC [Concomitant]
     Dates: start: 20130224
  8. TEGRETOL [Concomitant]

REACTIONS (13)
  - Decreased appetite [Not Recovered/Not Resolved]
  - Rash [Not Recovered/Not Resolved]
  - Dry throat [Not Recovered/Not Resolved]
  - Muscular weakness [Not Recovered/Not Resolved]
  - Nasal congestion [Not Recovered/Not Resolved]
  - Rhinorrhoea [Not Recovered/Not Resolved]
  - Ear congestion [Not Recovered/Not Resolved]
  - Peripheral coldness [Not Recovered/Not Resolved]
  - Paraesthesia [Not Recovered/Not Resolved]
  - Drug dose omission [Unknown]
  - Headache [Not Recovered/Not Resolved]
  - Diarrhoea [Recovered/Resolved]
  - Pain in extremity [Not Recovered/Not Resolved]
